FAERS Safety Report 9242088 (Version 1)
Quarter: 2013Q2

REPORT INFORMATION
  Report Type: Spontaneous
  Country: US (occurrence: US)
  Receive Date: 20130419
  Receipt Date: 20130419
  Transmission Date: 20140414
  Serious: Yes (Other)
  Sender: FDA-Public Use
  Company Number: US-ROCHE-1210208

PATIENT
  Age: 53 Year
  Sex: Female
  Weight: 135.75 kg

DRUGS (13)
  1. XELODA [Suspect]
     Indication: BREAST CANCER
     Dosage: 500X4 MG
     Route: 048
     Dates: start: 20130108, end: 20130329
  2. FENTANYL [Concomitant]
  3. ALBUTEROL [Concomitant]
  4. ALPRAZOLAM [Concomitant]
  5. ESOMEPRAZOLE [Concomitant]
  6. OXYCODONE/ACETAMINOPHEN [Concomitant]
  7. ONDANSETRON BASICS [Concomitant]
  8. PROCHLORPERAZINE MALEATE [Concomitant]
  9. CITALOPRAM [Concomitant]
  10. ACETAMINOPHEN [Concomitant]
  11. CALCIUM PHOSPHATE [Concomitant]
  12. IBUPROFEN [Concomitant]
  13. MECLIZINE [Concomitant]

REACTIONS (2)
  - Breast cancer [Not Recovered/Not Resolved]
  - Drug ineffective [Unknown]
